FAERS Safety Report 6859324-0 (Version None)
Quarter: 2010Q3

REPORT INFORMATION
  Report Type: 
  Country: None (occurrence: None)
  Receive Date: 20100719
  Receipt Date: 20080225
  Transmission Date: 20110219
  Serious: Yes (Hospitalization)
  Sender: FDA-Public Use
  Company Number: US-PFIZER INC-2008018411

PATIENT
  Sex: Female
  Weight: 89.09 kg

DRUGS (4)
  1. CHANTIX [Suspect]
     Indication: EX-TOBACCO USER
     Route: 048
     Dates: start: 20080125, end: 20080211
  2. TRIAMTERENE [Concomitant]
  3. AMBIEN [Concomitant]
  4. LORAZEPAM [Concomitant]

REACTIONS (5)
  - FLATULENCE [None]
  - GASTRITIS [None]
  - MALAISE [None]
  - PAIN [None]
  - PANCREATITIS ACUTE [None]
